FAERS Safety Report 14293883 (Version 1)
Quarter: 2017Q4

REPORT INFORMATION
  Report Type: Spontaneous
  Country: IT (occurrence: IT)
  Receive Date: 20171216
  Receipt Date: 20171216
  Transmission Date: 20180321
  Serious: Yes (Life-Threatening, Hospitalization, Other)
  Sender: FDA-Public Use
  Company Number: IT-CIPLA LTD.-2017IT24159

PATIENT

DRUGS (2)
  1. BARNIDIPINE [Suspect]
     Active Substance: BARNIDIPINE
     Indication: HYPERTENSION
     Dosage: 10 MG, QD
     Route: 048
     Dates: start: 20170111, end: 20170211
  2. CARVEDILOL. [Suspect]
     Active Substance: CARVEDILOL
     Indication: HYPERTENSION
     Dosage: 31.25 MG, QD (6.25 MG IN THE MORNING AND 25 MG IN THE EVENING)
     Route: 048
     Dates: end: 20170211

REACTIONS (7)
  - Cold sweat [Recovering/Resolving]
  - Vertigo [Unknown]
  - Hypertensive crisis [Recovering/Resolving]
  - Dizziness postural [Recovering/Resolving]
  - Headache [Recovering/Resolving]
  - Drug ineffective [Unknown]
  - Nausea [Recovering/Resolving]

NARRATIVE: CASE EVENT DATE: 20170211
